FAERS Safety Report 24877071 (Version 1)
Quarter: 2025Q1

REPORT INFORMATION
  Report Type: Report from Study
  Country: CO (occurrence: CO)
  Receive Date: 20250123
  Receipt Date: 20250123
  Transmission Date: 20250408
  Serious: Yes (Hospitalization)
  Sender: BIOVITRUM
  Company Number: CO-AstraZeneca-CH-00788260A

PATIENT
  Age: 9 Week
  Sex: Female
  Weight: 3.2 kg

DRUGS (1)
  1. PALIVIZUMAB [Suspect]
     Active Substance: PALIVIZUMAB
     Indication: Antiviral prophylaxis
     Route: 030
     Dates: start: 20241125

REACTIONS (1)
  - Cardiac disorder [Unknown]
